FAERS Safety Report 5294636-6 (Version None)
Quarter: 2007Q2

REPORT INFORMATION
  Report Type: 
  Country: None (occurrence: None)
  Receive Date: 20070412
  Receipt Date: 20070410
  Transmission Date: 20071010
  Serious: Yes (Other)
  Sender: FDA-Public Use
  Company Number: JP-JPN-A200701659

PATIENT
  Age: 61 Year
  Sex: Male

DRUGS (2)
  1. ZEFIX [Suspect]
     Indication: HEPATIC CIRRHOSIS
     Dosage: 100MG PER DAY
     Route: 048
     Dates: start: 20051227
  2. HEPSERA [Concomitant]
     Route: 048
     Dates: start: 20070222

REACTIONS (1)
  - HEPATIC FUNCTION ABNORMAL [None]
